FAERS Safety Report 18333483 (Version 3)
Quarter: 2021Q2

REPORT INFORMATION
  Report Type: Spontaneous
  Country: US (occurrence: US)
  Receive Date: 20201001
  Receipt Date: 20210426
  Transmission Date: 20210717
  Serious: Yes (Other)
  Sender: FDA-Public Use
  Company Number: US-SA-2020SA269626

PATIENT
  Age: 69 Year
  Sex: Male

DRUGS (1)
  1. ZANTAC [Suspect]
     Active Substance: RANITIDINE HYDROCHLORIDE
     Indication: DYSPEPSIA
     Dosage: 150 MG, QW
     Dates: start: 201501, end: 201901

REACTIONS (1)
  - Prostate cancer stage I [Unknown]

NARRATIVE: CASE EVENT DATE: 20190101
